FAERS Safety Report 8560708-3 (Version None)
Quarter: 2012Q3

REPORT INFORMATION
  Report Type: 
  Country: None (occurrence: None)
  Receive Date: 20120802
  Receipt Date: 20120801
  Transmission Date: 20120928
  Serious: Yes (Hospitalization)
  Sender: FDA-Public Use
  Company Number: PHHO2010FR04324

PATIENT
  Sex: Male
  Weight: 81.4 kg

DRUGS (8)
  1. MYCOPHENOLIC ACID [Suspect]
     Indication: RENAL TRANSPLANT
     Dosage: 1440 MG/DAY
     Route: 048
     Dates: start: 20100131, end: 20100310
  2. RASILEZ (ALISKIREN) [Concomitant]
     Indication: HYPERTENSION
     Dosage: UNK
  3. LASIX [Concomitant]
     Indication: HYPERTENSION
     Dosage: 40 MG/DAY
     Route: 048
  4. PREDNISONE TAB [Suspect]
     Indication: RENAL TRANSPLANT
     Dosage: 20 MG/DAY
     Route: 048
     Dates: start: 20100131, end: 20100310
  5. AMLODIPINE BESYLATE [Concomitant]
     Indication: HYPERTENSION
     Dosage: 5 MG/DAY
  6. RAMIPRIL [Concomitant]
     Indication: HYPERTENSION
     Dosage: 5 MG/DAY
     Route: 048
     Dates: end: 20100311
  7. NEORAL [Suspect]
     Indication: RENAL TRANSPLANT
     Dosage: 350 MG/DAY
     Route: 048
     Dates: start: 20100131, end: 20100310
  8. BACTRIM DS [Concomitant]
     Indication: PROPHYLAXIS
     Dosage: 3 PILL PER WEEK
     Dates: start: 20100203

REACTIONS (2)
  - INFECTION [None]
  - URINOMA [None]
